FAERS Safety Report 4284736-1 (Version None)
Quarter: 2004Q1

REPORT INFORMATION
  Report Type: 
  Country: None (occurrence: None)
  Receive Date: 20040202
  Receipt Date: 20040116
  Transmission Date: 20041129
  Serious: Yes (Hospitalization)
  Sender: FDA-Public Use
  Company Number: 7269

PATIENT
  Age: 71 Year
  Sex: Male

DRUGS (10)
  1. FLUOROURACIL [Suspect]
     Route: 042
     Dates: start: 20030124, end: 20031106
  2. IRINOTECAN [Suspect]
     Route: 042
     Dates: start: 20030124, end: 20031106
  3. LEUCOVORIN CALCIUM [Suspect]
     Route: 042
     Dates: start: 20030124, end: 20031106
  4. EKB-569 [Suspect]
     Indication: COLORECTAL CANCER
     Dosage: 25 MG
     Route: 048
     Dates: start: 20030124, end: 20031108
  5. LOPERAMIDE HCL [Concomitant]
  6. ACENOCOUMAROL [Concomitant]
  7. CANDESARTAN [Concomitant]
  8. DIAZEPAM [Concomitant]
  9. TAMSULOSIN [Concomitant]
  10. OMEPRAZOLE [Concomitant]

REACTIONS (2)
  - BLOOD CREATININE INCREASED [None]
  - DIARRHOEA [None]
